FAERS Safety Report 12397427 (Version 7)
Quarter: 2016Q4

REPORT INFORMATION
  Report Type: Report from Study
  Country: CN (occurrence: CN)
  Receive Date: 20160524
  Receipt Date: 20161212
  Transmission Date: 20170207
  Serious: Yes (Hospitalization, Other)
  Sender: FDA-Public Use
  Company Number: CN-GLAXOSMITHKLINE-CN2016069601

PATIENT
  Age: 59 Year
  Sex: Male
  Weight: 68 kg

DRUGS (7)
  1. HEPARIN CALCIUM [Concomitant]
     Active Substance: HEPARIN CALCIUM
     Indication: COR PULMONALE
     Dosage: 4000 UNIT, QD
     Dates: start: 20160517, end: 20160526
  2. VALSARTAN CAPSULES [Concomitant]
     Indication: HYPERTENSION
  3. ATORVASTATIN CALCIUM TABLETS [Concomitant]
     Active Substance: ATORVASTATIN CALCIUM
     Indication: ARTERIAL DISORDER
  4. FUROSEMIDE. [Concomitant]
     Active Substance: FUROSEMIDE
     Indication: COR PULMONALE
  5. FLUTICASONE FUROATE + VILANTEROL TRIFENATATE [Suspect]
     Active Substance: FLUTICASONE FUROATE\VILANTEROL TRIFENATATE
     Indication: CHRONIC OBSTRUCTIVE PULMONARY DISEASE
     Dosage: 1 PUFF QD
     Route: 055
     Dates: start: 20150901, end: 20160516
  6. NIFEDIPINE. [Concomitant]
     Active Substance: NIFEDIPINE
     Indication: HYPERTENSION
  7. FLUTICASONE FUROATE + VILANTEROL TRIFENATATE [Suspect]
     Active Substance: FLUTICASONE FUROATE\VILANTEROL TRIFENATATE
     Dosage: 1 PUFF QD
     Route: 055
     Dates: start: 20150527, end: 20160822

REACTIONS (4)
  - Chronic obstructive pulmonary disease [Recovered/Resolved]
  - Pneumonia [Recovered/Resolved]
  - Cor pulmonale [Recovered/Resolved]
  - Respiratory failure [Recovered/Resolved]

NARRATIVE: CASE EVENT DATE: 20160512
